FAERS Safety Report 7122378-0 (Version None)
Quarter: 2010Q4

REPORT INFORMATION
  Report Type: 
  Country: None (occurrence: None)
  Receive Date: 20101124
  Receipt Date: 20101122
  Transmission Date: 20110411
  Serious: Yes (Other)
  Sender: FDA-Public Use
  Company Number: US-PERRIGO-10US014992

PATIENT
  Sex: Male

DRUGS (1)
  1. IBUPROFEN [Suspect]
     Indication: BACK PAIN
     Dosage: 400 MG, QD
     Route: 048
     Dates: start: 20101101, end: 20101101

REACTIONS (5)
  - ABNORMAL SENSATION IN EYE [None]
  - EXPIRED DRUG ADMINISTERED [None]
  - INCORRECT DRUG ADMINISTRATION DURATION [None]
  - MACULOPATHY [None]
  - VISUAL IMPAIRMENT [None]
